FAERS Safety Report 4785177-0 (Version None)
Quarter: 2005Q3

REPORT INFORMATION
  Report Type: 
  Country: None (occurrence: None)
  Receive Date: 20050929
  Receipt Date: 20050919
  Transmission Date: 20060218
  Serious: Yes (Hospitalization, Other)
  Sender: FDA-Public Use
  Company Number: CHNY2005DE01736

PATIENT
  Age: 23 Year
  Sex: Male
  Weight: 85 kg

DRUGS (1)
  1. NICOTINE [Suspect]
     Indication: SUICIDE ATTEMPT
     Dosage: 40 X 21 MG PATCHES, ONCE, TRANSDERMAL
     Route: 062
     Dates: start: 20050901

REACTIONS (8)
  - BRADYCARDIA [None]
  - CARDIOVASCULAR DISORDER [None]
  - INTENTIONAL MISUSE [None]
  - NAUSEA [None]
  - OVERDOSE [None]
  - SOMNOLENCE [None]
  - SUICIDE ATTEMPT [None]
  - VOMITING [None]
